FAERS Safety Report 4921016-2 (Version None)
Quarter: 2006Q1

REPORT INFORMATION
  Report Type: 
  Country: None (occurrence: None)
  Receive Date: 20060223
  Receipt Date: 20060213
  Transmission Date: 20060701
  Serious: Yes (Hospitalization)
  Sender: FDA-Public Use
  Company Number: US-MERCK-0602USA03376

PATIENT
  Age: 86 Year
  Sex: Female

DRUGS (4)
  1. FOSAMAX [Suspect]
     Indication: OSTEOPOROSIS
     Route: 048
  2. DETROL [Suspect]
     Indication: INCONTINENCE
     Route: 065
  3. CARAC [Suspect]
     Indication: SKIN CANCER
     Route: 061
     Dates: start: 20051001, end: 20051013
  4. CARAC [Suspect]
     Indication: ACTINIC KERATOSIS
     Route: 061
     Dates: start: 20051001, end: 20051013

REACTIONS (8)
  - BALANCE DISORDER [None]
  - DIFFICULTY IN WALKING [None]
  - DIZZINESS [None]
  - INCORRECT DOSE ADMINISTERED [None]
  - NAUSEA [None]
  - VERTIGO [None]
  - VISION BLURRED [None]
  - VOMITING [None]
